FAERS Safety Report 22098981 (Version 1)
Quarter: 2023Q1

REPORT INFORMATION
  Report Type: Report from Study
  Country: US (occurrence: US)
  Receive Date: 20230315
  Receipt Date: 20230315
  Transmission Date: 20230417
  Serious: Yes (Hospitalization, Other)
  Sender: FDA-Public Use
  Company Number: US-ABBVIE-4340233

PATIENT
  Age: 55 Year
  Sex: Female

DRUGS (1)
  1. RINVOQ [Suspect]
     Active Substance: UPADACITINIB
     Indication: Rheumatoid arthritis
     Route: 048
     Dates: start: 20230126

REACTIONS (5)
  - Sepsis [Recovering/Resolving]
  - White blood cell count increased [Unknown]
  - Pneumonia [Recovering/Resolving]
  - Kidney infection [Recovering/Resolving]
  - Spinal disorder [Unknown]

NARRATIVE: CASE EVENT DATE: 20230307
